FAERS Safety Report 6190298-4 (Version None)
Quarter: 2009Q2

REPORT INFORMATION
  Report Type: 
  Country: None (occurrence: None)
  Receive Date: 20090514
  Receipt Date: 20090506
  Transmission Date: 20091009
  Serious: Yes (Other)
  Sender: FDA-Public Use
  Company Number: A0782781A

PATIENT
  Age: 52 Year
  Sex: Male

DRUGS (3)
  1. VENTOLIN [Suspect]
     Indication: BRONCHITIS
     Dosage: 2PUFF AS REQUIRED
     Route: 055
     Dates: start: 20090428
  2. BLOOD PRESSURE MEDICATION [Concomitant]
  3. CONCURRENT MEDICATIONS [Concomitant]

REACTIONS (3)
  - CHOKING [None]
  - DYSPNOEA [None]
  - RESPIRATORY TRACT CONGESTION [None]
